FAERS Safety Report 7074586-5 (Version None)
Quarter: 2010Q4

REPORT INFORMATION
  Report Type: 
  Country: None (occurrence: None)
  Receive Date: 20101029
  Receipt Date: 20100622
  Transmission Date: 20110411
  Serious: No
  Sender: FDA-Public Use
  Company Number: A0866574A

PATIENT
  Sex: Female

DRUGS (3)
  1. IMITREX [Suspect]
     Indication: MIGRAINE
     Dosage: 20MG AS REQUIRED
     Route: 045
  2. IMITREX [Suspect]
     Dosage: 20MG AS REQUIRED
     Route: 048
  3. IMITREX [Suspect]
     Dosage: 6MG AS REQUIRED
     Route: 058

REACTIONS (5)
  - COGNITIVE DISORDER [None]
  - CONFUSIONAL STATE [None]
  - DRUG INEFFECTIVE [None]
  - EPISTAXIS [None]
  - MYALGIA [None]
